FAERS Safety Report 18605059 (Version 1)
Quarter: 2020Q4

REPORT INFORMATION
  Report Type: Spontaneous
  Country: US (occurrence: US)
  Receive Date: 20201211
  Receipt Date: 20201211
  Transmission Date: 20210114
  Serious: Yes (Other)
  Sender: FDA-Public Use
  Company Number: None

PATIENT
  Age: 61 Year
  Sex: Male
  Weight: 81 kg

DRUGS (8)
  1. GABAPENTIN 100MG [Concomitant]
     Active Substance: GABAPENTIN
  2. AMLODIPINE 2.5MG [Concomitant]
     Active Substance: AMLODIPINE BESYLATE
  3. SODIUM BICARBONATE 325 MG [Concomitant]
  4. GLIPIZIDE 10MG [Concomitant]
     Active Substance: GLIPIZIDE
  5. CARVEDILOL 3.125MG [Concomitant]
     Active Substance: CARVEDILOL
  6. CABOMETYX [Suspect]
     Active Substance: CABOZANTINIB S-MALATE
     Indication: RENAL CELL CARCINOMA
     Route: 048
     Dates: start: 20201106, end: 20201202
  7. ONDANSETRON 4MG ODT [Concomitant]
  8. IRON 325MG [Concomitant]

REACTIONS (4)
  - Malignant neoplasm progression [None]
  - Hypertension [None]
  - Therapy interrupted [None]
  - Proteinuria [None]

NARRATIVE: CASE EVENT DATE: 20201209
